FAERS Safety Report 11673558 (Version 1)
Quarter: 2015Q4

REPORT INFORMATION
  Report Type: Report from Study
  Country: US (occurrence: US)
  Receive Date: 20151028
  Receipt Date: 20151028
  Transmission Date: 20160304
  Serious: Yes (Hospitalization, Other)
  Sender: FDA-Public Use
  Company Number: US-BIOGENIDEC-2015BI056071

PATIENT
  Age: 54 Year
  Sex: Female

DRUGS (2)
  1. TYSABRI [Suspect]
     Active Substance: NATALIZUMAB
     Indication: MULTIPLE SCLEROSIS
     Route: 042
     Dates: start: 20141015
  2. Z- PACK [Concomitant]

REACTIONS (17)
  - Emotional disorder [Recovered/Resolved with Sequelae]
  - Feeling abnormal [Recovered/Resolved with Sequelae]
  - General physical health deterioration [Recovered/Resolved with Sequelae]
  - Meniscus injury [Not Recovered/Not Resolved]
  - Multiple sclerosis relapse [Unknown]
  - Bronchitis [Recovered/Resolved]
  - Knee arthroplasty [Recovered/Resolved]
  - Pneumonia bacterial [Recovered/Resolved]
  - Anosmia [Recovered/Resolved]
  - Arthritis [Not Recovered/Not Resolved]
  - Hypoaesthesia [Recovered/Resolved]
  - Diarrhoea [Recovered/Resolved]
  - Malaise [Recovered/Resolved with Sequelae]
  - Depression [Recovered/Resolved with Sequelae]
  - Cough [Recovered/Resolved with Sequelae]
  - Ageusia [Recovered/Resolved]
  - Fatigue [Recovered/Resolved with Sequelae]

NARRATIVE: CASE EVENT DATE: 2014
